FAERS Safety Report 4939112-2 (Version None)
Quarter: 2006Q1

REPORT INFORMATION
  Report Type: 
  Country: None (occurrence: None)
  Receive Date: 20060306
  Receipt Date: 20060223
  Transmission Date: 20060701
  Serious: Yes (Other)
  Sender: FDA-Public Use
  Company Number: 143598USA

PATIENT
  Age: 53 Year
  Sex: Male

DRUGS (8)
  1. COPAXONE [Suspect]
     Indication: MULTIPLE SCLEROSIS
     Dosage: 20 MILLIGRAM QD SUBCUTANEOUS
     Route: 058
     Dates: start: 19980427, end: 20041104
  2. COPAXONE [Suspect]
     Indication: MULTIPLE SCLEROSIS
     Dosage: 20 MILLIGRAM QD SUBCUTANEOUS
     Route: 058
     Dates: start: 20050201, end: 20050601
  3. AMANTADINE HCL [Concomitant]
  4. ATENOLOL [Concomitant]
  5. FLONASE [Concomitant]
  6. MULTIVITAMIN [Concomitant]
  7. VITAMIN B-12 [Concomitant]
  8. IBUPROFEN [Concomitant]

REACTIONS (8)
  - DRUG ERUPTION [None]
  - IMPAIRED HEALING [None]
  - INJECTION SITE ABSCESS [None]
  - INJECTION SITE NECROSIS [None]
  - MULTIPLE SCLEROSIS [None]
  - OPEN WOUND [None]
  - PANNICULITIS [None]
  - VASCULITIS [None]
